FAERS Safety Report 7370103-0 (Version None)
Quarter: 2011Q1

REPORT INFORMATION
  Report Type: 
  Country: None (occurrence: None)
  Receive Date: 20110323
  Receipt Date: 20110314
  Transmission Date: 20110831
  Serious: Yes (Hospitalization, Other)
  Sender: FDA-Public Use
  Company Number: US-SANOFI-AVENTIS-2010SA031860

PATIENT
  Age: 81 Year
  Sex: Male

DRUGS (14)
  1. VENLAFAXINE [Suspect]
     Indication: ANXIETY
     Dosage: FREQUENCY- IN THE MORNING
     Route: 048
     Dates: start: 20090112
  2. TRIAMTERENE AND HYDROCHLOROTHIAZIDE [Concomitant]
     Dosage: 37.5-25 MG
     Route: 048
  3. FLUTICASONE PROPIONATE [Concomitant]
     Route: 045
  4. LORAZEPAM [Concomitant]
     Indication: ANXIETY
     Dosage: FREQUENCY- PO/BID
     Route: 048
  5. TRAZODONE [Suspect]
     Indication: ANXIETY
     Dosage: 25 MG IN THE AM, 25 MG IN THE PM AND 100 MG AT BEDTIME
     Route: 065
  6. ATENOLOL [Concomitant]
     Indication: HYPERTENSION
     Route: 048
  7. PLAVIX [Suspect]
     Route: 048
     Dates: start: 20081101
  8. VENLAFAXINE [Suspect]
     Indication: DEPRESSION
     Dosage: FREQUENCY- IN THE MORNING
     Route: 048
     Dates: start: 20090112
  9. TRAZODONE [Suspect]
     Indication: DEPRESSION
     Dosage: 25 MG IN THE AM, 25 MG IN THE PM AND 100 MG AT BEDTIME
     Route: 065
  10. SIMVASTATIN [Concomitant]
  11. MULTI-VITAMINS [Concomitant]
     Dosage: 1 TABLET
     Route: 048
  12. GLYCERYL TRINITRATE [Concomitant]
     Dosage: FREQUENCY- Q5MINS X 3 PRN
     Route: 060
  13. ASPIRIN [Suspect]
     Route: 048
  14. ALL OTHER THERAPEUTIC PRODUCTS [Concomitant]
     Dosage: 1 TABLET
     Route: 048

REACTIONS (4)
  - CHEST PAIN [None]
  - GASTROINTESTINAL HAEMORRHAGE [None]
  - HAEMATOCHEZIA [None]
  - DRUG INTERACTION [None]
